FAERS Safety Report 6724299-1 (Version None)
Quarter: 2010Q2

REPORT INFORMATION
  Report Type: 
  Country: None (occurrence: None)
  Receive Date: 20100513
  Receipt Date: 20100510
  Transmission Date: 20101027
  Serious: Yes (Hospitalization)
  Sender: FDA-Public Use
  Company Number: US-GILEAD-2010-0029061

PATIENT
  Sex: Female
  Weight: 87.622 kg

DRUGS (20)
  1. LETAIRIS [Suspect]
     Indication: PULMONARY ARTERIAL HYPERTENSION
     Route: 048
     Dates: start: 20070822
  2. OXYGEN [Concomitant]
  3. LASIX [Concomitant]
  4. CARTIA XT [Concomitant]
  5. LISINOPRIL [Concomitant]
  6. SPIRIVA [Concomitant]
  7. ATROVENT [Concomitant]
  8. ADVAIR DISKUS 100/50 [Concomitant]
  9. FLONASE [Concomitant]
  10. COMPAZINE [Concomitant]
  11. PROTONIX [Concomitant]
  12. PLAQUENIL [Concomitant]
  13. AMBIEN [Concomitant]
  14. FOSAMAX [Concomitant]
  15. OXYCONTIN [Concomitant]
  16. METHOTREXATE [Concomitant]
  17. NEURONTIN [Concomitant]
  18. VALIUM [Concomitant]
  19. PERCOCET [Concomitant]
  20. FOLIC ACID [Concomitant]

REACTIONS (1)
  - HYPERTENSION [None]
